FAERS Safety Report 4752512-9 (Version None)
Quarter: 2005Q3

REPORT INFORMATION
  Report Type: 
  Country: None (occurrence: None)
  Receive Date: 20050825
  Receipt Date: 20050811
  Transmission Date: 20060218
  Serious: Yes (Hospitalization)
  Sender: FDA-Public Use
  Company Number: BEWYE900812AUG05

PATIENT
  Sex: Male

DRUGS (8)
  1. ENBREL [Suspect]
     Indication: ANKYLOSING SPONDYLITIS
     Dosage: 25 MG 1X / WEEK
     Route: 058
     Dates: start: 20041116, end: 20050616
  2. TRAMADOL HCL [Concomitant]
     Indication: PAIN
     Dosage: 200 MG A DAY
     Route: 048
     Dates: start: 20030101
  3. AMIODARONE [Concomitant]
     Dosage: 30 MG A DAY
     Route: 048
  4. FOLIC ACID [Concomitant]
     Dosage: 5 MG 1 X / DAY
     Route: 048
  5. OMEPRAZOLE [Concomitant]
     Dosage: 20 MG A DAY
     Route: 048
  6. AMILORIDE HYDROCHLORIDE [Concomitant]
  7. ATACAND [Concomitant]
     Dosage: 16 MG 1X / DAY
     Route: 048
  8. FUROSEMIDE [Concomitant]

REACTIONS (4)
  - ATRIAL FIBRILLATION [None]
  - CARDIAC FAILURE [None]
  - CARDIAC FAILURE CONGESTIVE [None]
  - CONDITION AGGRAVATED [None]
